FAERS Safety Report 9603266 (Version 2)
Quarter: 2013Q4

REPORT INFORMATION
  Report Type: Spontaneous
  Country: US (occurrence: US)
  Receive Date: 20131007
  Receipt Date: 20131105
  Transmission Date: 20140711
  Serious: Yes (Hospitalization)
  Sender: FDA-Public Use
  Company Number: US-ACTELION-A-NJ2013-89315

PATIENT
  Age: 47 Year
  Sex: Male

DRUGS (1)
  1. VELETRI [Suspect]
     Indication: PULMONARY ARTERIAL HYPERTENSION
     Dosage: 12.3 UNK, UNK
     Route: 042
     Dates: start: 20130228

REACTIONS (3)
  - Medical device complication [Unknown]
  - Catheter site haemorrhage [Unknown]
  - Oxygen saturation abnormal [Unknown]
